FAERS Safety Report 4998775-6 (Version None)
Quarter: 2006Q2

REPORT INFORMATION
  Report Type: 
  Country: None (occurrence: None)
  Receive Date: 20060509
  Receipt Date: 20060425
  Transmission Date: 20061013
  Serious: Yes (Hospitalization)
  Sender: FDA-Public Use
  Company Number: 2006S1001208

PATIENT
  Age: 55 Year
  Sex: Male
  Weight: 86.1834 kg

DRUGS (9)
  1. CLOZAPINE [Suspect]
     Indication: DRUG RESISTANCE
     Dosage: 50 MG;HS;ORAL
     Route: 048
     Dates: end: 20060210
  2. CLOZAPINE [Suspect]
     Indication: SCHIZOPHRENIA
     Dosage: 50 MG;HS;ORAL
     Route: 048
     Dates: end: 20060210
  3. CLOZAPINE [Suspect]
     Indication: DRUG RESISTANCE
     Dosage: 200 MG;HS;ORAL
     Route: 048
     Dates: end: 20060210
  4. CLOZAPINE [Suspect]
     Indication: SCHIZOPHRENIA
     Dosage: 200 MG;HS;ORAL
     Route: 048
     Dates: end: 20060210
  5. ERGOCALCIFEROL/CALCIUM [Concomitant]
  6. PHOSPHATE/CALCIUM [Concomitant]
  7. SODIUM LACTATE [Concomitant]
  8. LAMOTRIGINE [Concomitant]
  9. BENAZEPRIL HYDROCHLORIDE [Concomitant]

REACTIONS (7)
  - BRONCHITIS VIRAL [None]
  - GRANULOCYTOPENIA [None]
  - LEUKOPENIA [None]
  - LYMPHOCYTE COUNT INCREASED [None]
  - MYALGIA [None]
  - REFUSAL OF TREATMENT BY PATIENT [None]
  - SCHIZOPHRENIA, DISORGANISED TYPE [None]
